FAERS Safety Report 15404271 (Version 1)
Quarter: 2018Q3

REPORT INFORMATION
  Report Type: Report from Study
  Country: KR (occurrence: KR)
  Receive Date: 20180919
  Receipt Date: 20180919
  Transmission Date: 20181010
  Serious: Yes (Hospitalization)
  Sender: FDA-Public Use
  Company Number: KR-SA-2016SA165504

PATIENT
  Age: 57 Year
  Sex: Male
  Weight: 70.7 kg

DRUGS (12)
  1. OXALIPLATIN. [Suspect]
     Active Substance: OXALIPLATIN
     Dosage: UNK UNK,Q3W
     Route: 042
     Dates: start: 20160825, end: 20160825
  2. DEXAMETHASONE. [Concomitant]
     Active Substance: DEXAMETHASONE
     Dosage: UNK UNK, UNK
     Route: 065
     Dates: start: 20160825, end: 20160827
  3. AMLODIPINE [Concomitant]
     Active Substance: AMLODIPINE BESYLATE
     Dosage: UNK UNK, UNK
     Route: 065
     Dates: start: 2006
  4. OLMETEC [Concomitant]
     Active Substance: OLMESARTAN MEDOXOMIL
     Dosage: UNK, UNK,UNK
     Route: 065
     Dates: start: 2006
  5. GIMERACIL/OTERACIL POTASSIUM/TEGAFUR [Suspect]
     Active Substance: GIMERACIL\OTERACIL\TEGAFUR
     Indication: GASTRIC CANCER
     Dosage: UNK UNK, UNK
     Route: 048
     Dates: start: 20160805, end: 20160903
  6. DOCETAXEL. [Suspect]
     Active Substance: DOCETAXEL
     Indication: GASTRIC CANCER
     Dosage: UNK UNK,Q3W
     Route: 042
     Dates: start: 20160805, end: 20160805
  7. OXALIPLATIN. [Suspect]
     Active Substance: OXALIPLATIN
     Indication: GASTRIC CANCER
     Dosage: UNK UNK,Q3W
     Route: 042
     Dates: start: 20160805, end: 20160805
  8. ACETYLSALICYLIC ACID [Concomitant]
     Active Substance: ASPIRIN
     Dosage: UNK, UNK,UNK
     Route: 065
     Dates: start: 2006
  9. AMOXICILLIN;CLAVULANIC ACID [Concomitant]
     Dosage: UNK UNK, UNK
     Route: 065
     Dates: start: 20160804, end: 20160906
  10. OMEPRAZOLE. [Concomitant]
     Active Substance: OMEPRAZOLE
     Dosage: UNK UNK, UNK
     Route: 065
     Dates: start: 20160825, end: 20160827
  11. DOCETAXEL. [Suspect]
     Active Substance: DOCETAXEL
     Dosage: UNK UNK,Q3W
     Route: 042
     Dates: start: 20160825, end: 20160825
  12. NASEA [Concomitant]
     Active Substance: RAMOSETRON HYDROCHLORIDE
     Dosage: UNK, UNK,UNK
     Route: 065
     Dates: start: 20160825, end: 20160828

REACTIONS (1)
  - Enteritis [Recovered/Resolved]

NARRATIVE: CASE EVENT DATE: 20160902
